FAERS Safety Report 26065364 (Version 1)
Quarter: 2025Q4

REPORT INFORMATION
  Report Type: Spontaneous
  Country: US (occurrence: None)
  Receive Date: 20251119
  Receipt Date: 20251119
  Transmission Date: 20260118
  Serious: Yes (Other)
  Sender: FDA-CTU
  Company Number: None

PATIENT
  Age: 75 Year
  Sex: Male

DRUGS (2)
  1. VENCLEXTA [Suspect]
     Active Substance: VENETOCLAX
     Indication: Myelodysplastic syndrome
     Dosage: 100MG DAILY ORAL
     Route: 048
  2. VORICONAZOLE [Suspect]
     Active Substance: VORICONAZOLE

REACTIONS (7)
  - Fall [None]
  - Loss of consciousness [None]
  - Pruritus [None]
  - Pruritus [None]
  - Sleep disorder [None]
  - Back pain [None]
  - Depression [None]
